FAERS Safety Report 4826842-6 (Version None)
Quarter: 2005Q4

REPORT INFORMATION
  Report Type: 
  Country: None (occurrence: None)
  Receive Date: 20051014
  Receipt Date: 20050628
  Transmission Date: 20060501
  Serious: No
  Sender: FDA-Public Use
  Company Number: 2005SP001726

PATIENT
  Age: 38 Year
  Sex: Female

DRUGS (4)
  1. LUNESTA [Suspect]
     Indication: INSOMNIA
     Dosage: 3 MG;HS;ORAL
     Route: 048
     Dates: start: 20050616, end: 20050624
  2. EFFEXOR [Suspect]
     Indication: DEPRESSION
     Dosage: 37.5 MG;QD;ORAL ; 75 MG;QD;ORAL ; 37.5 MG;QD;ORAL
     Route: 048
     Dates: start: 20050617, end: 20050621
  3. EFFEXOR [Suspect]
     Indication: DEPRESSION
     Dosage: 37.5 MG;QD;ORAL ; 75 MG;QD;ORAL ; 37.5 MG;QD;ORAL
     Route: 048
     Dates: start: 20050622, end: 20050623
  4. EFFEXOR [Suspect]
     Indication: DEPRESSION
     Dosage: 37.5 MG;QD;ORAL ; 75 MG;QD;ORAL ; 37.5 MG;QD;ORAL
     Route: 048
     Dates: start: 20050624, end: 20050720

REACTIONS (8)
  - DRUG INEFFECTIVE [None]
  - DYSGEUSIA [None]
  - MIDDLE INSOMNIA [None]
  - PAROSMIA [None]
  - SKIN ODOUR ABNORMAL [None]
  - SOMNOLENCE [None]
  - THINKING ABNORMAL [None]
  - TONGUE DISCOLOURATION [None]
